FAERS Safety Report 5797232-7 (Version None)
Quarter: 2008Q3

REPORT INFORMATION
  Report Type: 
  Country: None (occurrence: None)
  Receive Date: 20080701
  Receipt Date: 20080619
  Transmission Date: 20090109
  Serious: Yes (Hospitalization)
  Sender: FDA-Public Use
  Company Number: FR-PFIZER INC-2005027998

PATIENT
  Sex: Male
  Weight: 111 kg

DRUGS (7)
  1. SU-011,248 [Suspect]
     Indication: RENAL CELL CARCINOMA
     Route: 048
     Dates: start: 20050121, end: 20050203
  2. SECTRAL [Concomitant]
     Indication: BREAST CANCER
     Dosage: FREQ:UNKNOWN
     Route: 048
  3. IRBESARTAN [Concomitant]
     Indication: BREAST CANCER
     Dosage: FREQ:UNKNOWN
     Route: 048
  4. ISOPTIN [Concomitant]
     Dosage: FREQ:UNKNOWN
     Route: 048
  5. LASIX [Concomitant]
     Dosage: FREQ:UNKNOWN
     Route: 048
  6. LEVOTHYROXINE SODIUM [Concomitant]
     Dosage: FREQ:UNKNOWN
     Route: 048
  7. EFFERALGAN CODEINE [Concomitant]
     Dosage: FREQ:UNKNOWN
     Route: 048

REACTIONS (1)
  - JAUNDICE [None]
